FAERS Safety Report 12184287 (Version 1)
Quarter: 2016Q1

REPORT INFORMATION
  Report Type: Spontaneous
  Country: US (occurrence: US)
  Receive Date: 20160316
  Receipt Date: 20160316
  Transmission Date: 20160526
  Serious: No
  Sender: FDA-Public Use
  Company Number: US-JNJFOC-20160225714

PATIENT
  Sex: Female
  Weight: 105 kg

DRUGS (2)
  1. KETACONOZOLE [Suspect]
     Active Substance: KETOCONAZOLE
     Indication: PSORIASIS
     Route: 061
  2. KETACONOZOLE [Suspect]
     Active Substance: KETOCONAZOLE
     Indication: DERMATITIS
     Route: 061

REACTIONS (3)
  - Drug ineffective for unapproved indication [Unknown]
  - Off label use [Unknown]
  - Product use issue [Unknown]
